FAERS Safety Report 20712086 (Version 1)
Quarter: 2022Q2

REPORT INFORMATION
  Report Type: Spontaneous
  Country: None (occurrence: US)
  Receive Date: 20220414
  Receipt Date: 20220414
  Transmission Date: 20220720
  Serious: Yes (Hospitalization)
  Sender: FDA-Public Use
  Company Number: US-United BioSource LLC-2127782

PATIENT
  Age: 42 Year
  Sex: Female

DRUGS (1)
  1. KIMMTRAK [Suspect]
     Active Substance: TEBENTAFUSP-TEBN
     Indication: Product used for unknown indication
     Dates: start: 20220330, end: 20220330

REACTIONS (5)
  - Mental status changes [Recovered/Resolved]
  - Somnolence [Recovered/Resolved]
  - Pyrexia [Unknown]
  - Hypotension [Unknown]
  - Hypoxia [Unknown]

NARRATIVE: CASE EVENT DATE: 20220330
